FAERS Safety Report 15347215 (Version 1)
Quarter: 2018Q3

REPORT INFORMATION
  Report Type: Spontaneous
  Country: FR (occurrence: FR)
  Receive Date: 20180904
  Receipt Date: 20180904
  Transmission Date: 20181010
  Serious: Yes (Other)
  Sender: FDA-Public Use
  Company Number: FR-BRISTOL-MYERS SQUIBB COMPANY-BMS-2018-081854

PATIENT

DRUGS (2)
  1. NIVOLUMAB [Suspect]
     Active Substance: NIVOLUMAB
     Indication: NEOPLASM
     Route: 065
  2. PLATINUM COMPOUNDS [Suspect]
     Active Substance: UNSPECIFIED INGREDIENT
     Indication: NEOPLASM
     Route: 065

REACTIONS (1)
  - Renal tubular disorder [Unknown]
